FAERS Safety Report 25608122 (Version 3)
Quarter: 2025Q4

REPORT INFORMATION
  Report Type: Spontaneous
  Country: US (occurrence: US)
  Receive Date: 20250725
  Receipt Date: 20251014
  Transmission Date: 20260119
  Serious: No
  Sender: ELI LILLY AND COMPANY
  Company Number: US-ELI_LILLY_AND_COMPANY-US202507021552

PATIENT
  Age: 64 Year
  Sex: Female

DRUGS (1)
  1. VERZENIO [Suspect]
     Active Substance: ABEMACICLIB
     Indication: Breast cancer female
     Dosage: 150 MG, BID
     Route: 048

REACTIONS (7)
  - Pain [Unknown]
  - Dyspnoea [Unknown]
  - Localised infection [Unknown]
  - Diarrhoea [Unknown]
  - Asthenia [Unknown]
  - Nausea [Unknown]
  - Decreased appetite [Unknown]

NARRATIVE: CASE EVENT DATE: 20250801
